FAERS Safety Report 9324825 (Version 2)
Quarter: 2013Q4

REPORT INFORMATION
  Report Type: Spontaneous
  Country: US (occurrence: US)
  Receive Date: 20130603
  Receipt Date: 20131113
  Transmission Date: 20140711
  Serious: Yes (Hospitalization)
  Sender: FDA-Public Use
  Company Number: US-B.I. PHARMACEUTICALS,INC./RIDGEFIELD-2013-BI-15441BP

PATIENT
  Age: 81 Year
  Sex: Female
  Weight: 85.28 kg

DRUGS (17)
  1. PRADAXA [Suspect]
     Indication: ANTICOAGULANT THERAPY
     Dosage: 300 MG
     Route: 048
     Dates: start: 20110808, end: 201109
  2. PRADAXA [Suspect]
     Indication: ATRIAL FIBRILLATION
     Dosage: 150 MG
     Route: 048
     Dates: start: 201109, end: 20111110
  3. CALCARB 600 WITH VITAMIN D [Concomitant]
     Route: 048
  4. CITALOPRAM [Concomitant]
     Route: 048
  5. IPRATROPIUM BROMIDE [Concomitant]
     Dosage: 126 MCG
  6. PERCOCET [Concomitant]
     Route: 048
  7. LESCOL [Concomitant]
     Dosage: 80 MG
     Route: 048
  8. FUROSEMIDE [Concomitant]
     Dosage: 20 MG
     Route: 048
  9. ESTRACE [Concomitant]
     Dosage: 0.1 MG
     Route: 067
  10. CARVEDILOL [Concomitant]
     Dosage: 12.5 MG
     Route: 048
  11. SENOKOT [Concomitant]
     Route: 048
  12. MUCINEX [Concomitant]
     Dosage: 600 MG
     Route: 048
  13. SYMBICORT [Concomitant]
     Route: 055
  14. CLOBETASOL PROPIONATE [Concomitant]
     Route: 061
  15. SPIRIVA HANDIHALER [Concomitant]
     Dosage: 18 MCG
     Route: 055
  16. CENTRUM SILVER ULTRA WOMENS [Concomitant]
     Route: 048
  17. ALENDRONATE [Concomitant]
     Route: 048

REACTIONS (5)
  - Lower gastrointestinal haemorrhage [Recovered/Resolved]
  - Gastrointestinal haemorrhage [Recovered/Resolved]
  - Anaemia [Unknown]
  - Contusion [Unknown]
  - Epistaxis [Recovered/Resolved]
